FAERS Safety Report 15587163 (Version 1)
Quarter: 2018Q4

REPORT INFORMATION
  Report Type: Spontaneous
  Country: US (occurrence: US)
  Receive Date: 20181101
  Receipt Date: 20181101
  Transmission Date: 20190205
  Serious: Yes (Hospitalization)
  Sender: FDA-Public Use
  Company Number: None

PATIENT
  Age: 50 Year
  Sex: Female

DRUGS (16)
  1. SILDENAFIL. [Concomitant]
     Active Substance: SILDENAFIL
  2. LORAZEPAM. [Concomitant]
     Active Substance: LORAZEPAM
  3. ALBUTEROL. [Concomitant]
     Active Substance: ALBUTEROL
  4. POTASSIUM CHLORIDE. [Concomitant]
     Active Substance: POTASSIUM CHLORIDE
  5. TRAZODONE [Concomitant]
     Active Substance: TRAZODONE HYDROCHLORIDE
  6. REMODULIN [Concomitant]
     Active Substance: TREPROSTINIL
  7. WARFARIN [Concomitant]
     Active Substance: WARFARIN
  8. TRACLEER [Suspect]
     Active Substance: BOSENTAN
     Indication: PULMONARY ARTERIAL HYPERTENSION
     Route: 048
     Dates: start: 201412
  9. NORCO [Concomitant]
     Active Substance: ACETAMINOPHEN\HYDROCODONE BITARTRATE
  10. COMBIVENT [Concomitant]
     Active Substance: ALBUTEROL SULFATE\IPRATROPIUM BROMIDE
  11. OMEPRAZOLE. [Concomitant]
     Active Substance: OMEPRAZOLE
  12. DEPO-PROVERA [Concomitant]
     Active Substance: MEDROXYPROGESTERONE ACETATE
  13. ONDANSETRON [Concomitant]
     Active Substance: ONDANSETRON
  14. TYLENOL WITH CODEINE [Concomitant]
     Active Substance: ACETAMINOPHEN\CODEINE PHOSPHATE
  15. BUMETANIDE. [Concomitant]
     Active Substance: BUMETANIDE
  16. METOLAZONE. [Concomitant]
     Active Substance: METOLAZONE

REACTIONS (1)
  - Right ventricular failure [None]

NARRATIVE: CASE EVENT DATE: 20181014
